FAERS Safety Report 17684944 (Version 1)
Quarter: 2020Q2

REPORT INFORMATION
  Report Type: Spontaneous
  Country: US (occurrence: US)
  Receive Date: 20200420
  Receipt Date: 20200420
  Transmission Date: 20200714
  Serious: Yes (Life-Threatening, Hospitalization, Other)
  Sender: FDA-Public Use
  Company Number: US-BAYER-2020-060162

PATIENT
  Age: 59 Year
  Sex: Male
  Weight: 122.45 kg

DRUGS (24)
  1. BAYER LOW DOSE [Suspect]
     Active Substance: ASPIRIN
     Indication: CORONARY ARTERY DISEASE
     Dosage: UNK
     Route: 048
     Dates: start: 20150724, end: 20160615
  2. FINASTERIDE. [Concomitant]
     Active Substance: FINASTERIDE
     Dosage: UNK
     Dates: start: 2012, end: 20160715
  3. FUROSEMIDE. [Concomitant]
     Active Substance: FUROSEMIDE
     Dosage: UNK
     Dates: start: 20150319
  4. TOPROL XL [Concomitant]
     Active Substance: METOPROLOL SUCCINATE
     Dosage: UNK
     Dates: start: 20160724, end: 20170123
  5. ELIQUIS [Interacting]
     Active Substance: APIXABAN
     Indication: ATRIAL FIBRILLATION
     Dosage: UNK
     Route: 048
     Dates: start: 20170319, end: 20170322
  6. APIXABAN [Interacting]
     Active Substance: APIXABAN
     Dosage: UNK
     Dates: start: 20170417
  7. TORSEMIDE. [Concomitant]
     Active Substance: TORSEMIDE
     Dosage: UNK
     Dates: start: 20160520
  8. AMLODIPINE [Concomitant]
     Active Substance: AMLODIPINE BESYLATE
     Dosage: UNK
     Dates: start: 20150313
  9. METOLAZONE. [Concomitant]
     Active Substance: METOLAZONE
     Dosage: UNK
     Dates: start: 20150330
  10. BAYER LOW DOSE [Interacting]
     Active Substance: ASPIRIN
     Indication: CORONARY ARTERY DISEASE
     Dosage: UNK
     Dates: start: 20170730
  11. OMEPRAZOLE. [Concomitant]
     Active Substance: OMEPRAZOLE
     Dosage: UNK
     Dates: start: 2015, end: 20160715
  12. DIOVAN [Concomitant]
     Active Substance: VALSARTAN
     Indication: CARDIAC FAILURE
     Dosage: UNK
     Dates: start: 20190117, end: 20190204
  13. DIOVAN [Concomitant]
     Active Substance: VALSARTAN
     Indication: CARDIAC FAILURE
     Dosage: UNK
     Dates: start: 20190208
  14. BAYER LOW DOSE [Interacting]
     Active Substance: ASPIRIN
     Indication: CORONARY ARTERY DISEASE
     Dosage: UNK
     Route: 048
     Dates: start: 20180419
  15. ZAROXOLYN [Concomitant]
     Active Substance: METOLAZONE
     Dosage: UNK
     Dates: start: 20160120
  16. DIOVAN [Concomitant]
     Active Substance: VALSARTAN
     Indication: CARDIAC FAILURE
     Dosage: UNK
  17. NITROGLYCERINE [Concomitant]
     Active Substance: NITROGLYCERIN
     Dosage: UNK
     Dates: start: 20150128
  18. PLAVIX [Interacting]
     Active Substance: CLOPIDOGREL BISULFATE
     Indication: CORONARY ARTERY DISEASE
     Dosage: 75 MG
     Dates: start: 20170109
  19. BAYER LOW DOSE [Interacting]
     Active Substance: ASPIRIN
     Indication: CORONARY ARTERY DISEASE
     Dosage: UNK
     Dates: start: 20170708
  20. IMDUR [Concomitant]
     Active Substance: ISOSORBIDE MONONITRATE
     Dosage: UNK
     Dates: start: 20150811
  21. DIOVAN [Concomitant]
     Active Substance: VALSARTAN
     Indication: CARDIAC FAILURE
     Dosage: UNK
     Dates: start: 20150611, end: 20160715
  22. DIOVAN [Concomitant]
     Active Substance: VALSARTAN
     Indication: CARDIAC FAILURE
     Dosage: UNK
     Dates: start: 20160617, end: 20180531
  23. DIOVAN [Concomitant]
     Active Substance: VALSARTAN
     Indication: CARDIAC FAILURE
     Dosage: UNK
     Dates: start: 20180602, end: 20190613
  24. METOPROLOL TARTRATE. [Concomitant]
     Active Substance: METOPROLOL TARTRATE
     Dosage: UNK
     Dates: start: 10150210

REACTIONS (13)
  - Atrial flutter [Unknown]
  - Blood loss anaemia [Unknown]
  - Angina pectoris [Recovered/Resolved]
  - Anaemia [Unknown]
  - Blood loss anaemia [Unknown]
  - Acute kidney injury [Recovered/Resolved]
  - Coronary artery disease [Unknown]
  - Acute kidney injury [None]
  - Atrial fibrillation [Unknown]
  - Labelled drug-drug interaction medication error [None]
  - Gastrointestinal haemorrhage [Unknown]
  - Gastrointestinal haemorrhage [Recovered/Resolved]
  - Anaemia [Unknown]

NARRATIVE: CASE EVENT DATE: 20150806
